FAERS Safety Report 4956328-X (Version None)
Quarter: 2006Q1

REPORT INFORMATION
  Report Type: 
  Country: None (occurrence: None)
  Receive Date: 20060323
  Receipt Date: 20060309
  Transmission Date: 20060701
  Serious: Yes (Hospitalization)
  Sender: FDA-Public Use
  Company Number: DE200603002767

PATIENT
  Age: 48 Year
  Sex: Male

DRUGS (2)
  1. FLUCTIN (FLUOXETINE HYDROCHLORIDE) CAPSULE [Suspect]
     Indication: DEPRESSION
     Dosage: SEE IMAGE, ORAL
     Route: 048
     Dates: start: 20040209
  2. GABAPENTIN [Concomitant]

REACTIONS (2)
  - NERVE ROOT LESION [None]
  - POLYNEUROPATHY [None]
